FAERS Safety Report 6731442-7 (Version None)
Quarter: 2010Q2

REPORT INFORMATION
  Report Type: 
  Country: None (occurrence: None)
  Receive Date: 20100518
  Receipt Date: 20100518
  Transmission Date: 20101027
  Serious: Yes (Death, Life-Threatening, Hospitalization)
  Sender: FDA-Public Use
  Company Number: None

PATIENT
  Age: 58 Year
  Sex: Male
  Weight: 97.5 kg

DRUGS (2)
  1. ETANERCEPT 50 MG/ML AMGEN [Suspect]
     Indication: PSORIASIS
     Dosage: 50 MG EVERY 7 DAYS SQ
     Route: 058
     Dates: start: 20000101
  2. TACLONEX [Concomitant]

REACTIONS (2)
  - HISTOPLASMOSIS [None]
  - LUNG INFECTION [None]
